FAERS Safety Report 5341765-4 (Version None)
Quarter: 2007Q2

REPORT INFORMATION
  Report Type: 
  Country: None (occurrence: None)
  Receive Date: 20070529
  Receipt Date: 20070529
  Transmission Date: 20071010
  Serious: Yes (Hospitalization)
  Sender: FDA-Public Use
  Company Number: None

PATIENT
  Sex: Male
  Weight: 88.4514 kg

DRUGS (1)
  1. VYTORIN [Suspect]
     Indication: HYPERCHOLESTEROLAEMIA
     Dosage: ONE AT HS DAILY PO
     Route: 048
     Dates: start: 20070418, end: 20070429

REACTIONS (2)
  - CHOLECYSTITIS [None]
  - INFLUENZA LIKE ILLNESS [None]
